FAERS Safety Report 25638319 (Version 2)
Quarter: 2025Q4

REPORT INFORMATION
  Report Type: Spontaneous
  Country: US (occurrence: US)
  Receive Date: 20250804
  Receipt Date: 20251021
  Transmission Date: 20260117
  Serious: Yes (Death, Other)
  Sender: OPKO HEALTH
  Company Number: US-OPKO PHARMACEUTICALS, LLC.-2025OPK00122

PATIENT
  Age: 81 Year
  Sex: Female

DRUGS (3)
  1. RAYALDEE [Suspect]
     Active Substance: CALCIFEDIOL
     Indication: Chronic kidney disease
     Dosage: 30 MCG, QD
     Route: 048
     Dates: start: 20221214, end: 20250607
  2. RAYALDEE [Suspect]
     Active Substance: CALCIFEDIOL
     Indication: Hyperparathyroidism secondary
  3. RAYALDEE [Suspect]
     Active Substance: CALCIFEDIOL
     Indication: Vitamin D deficiency

REACTIONS (2)
  - Death [Fatal]
  - Hospice care [None]

NARRATIVE: CASE EVENT DATE: 20250607
